FAERS Safety Report 7573478-2 (Version None)
Quarter: 2011Q2

REPORT INFORMATION
  Report Type: 
  Country: None (occurrence: None)
  Receive Date: 20110621
  Receipt Date: 20110614
  Transmission Date: 20111010
  Serious: Yes (Other)
  Sender: FDA-Public Use
  Company Number: 201110710

PATIENT
  Sex: Female

DRUGS (1)
  1. LIORESAL [Suspect]
     Indication: MUSCLE SPASTICITY
     Dosage: DAILY, INTRATHECAL
     Route: 039

REACTIONS (7)
  - MOTOR DYSFUNCTION [None]
  - DIARRHOEA [None]
  - PAIN [None]
  - DRUG WITHDRAWAL SYNDROME [None]
  - RHINORRHOEA [None]
  - NAUSEA [None]
  - ABDOMINAL PAIN UPPER [None]
